FAERS Safety Report 17507126 (Version 1)
Quarter: 2020Q1

REPORT INFORMATION
  Report Type: Spontaneous
  Country: US (occurrence: US)
  Receive Date: 20200306
  Receipt Date: 20200306
  Transmission Date: 20200409
  Serious: No
  Sender: FDA-Public Use
  Company Number: US-AUROBINDO-AUR-APL-2019-067477

PATIENT
  Age: 76 Year
  Sex: Male
  Weight: 88 kg

DRUGS (4)
  1. METFORMIN HYDROCHLORIDE TABLETS USP 850 MG [Suspect]
     Active Substance: METFORMIN HYDROCHLORIDE
     Dosage: 1 DOSAGE FORM, ONCE A DAY
     Route: 065
     Dates: start: 20191012
  2. METFORMIN HYDROCHLORIDE TABLETS USP 850 MG [Suspect]
     Active Substance: METFORMIN HYDROCHLORIDE
     Indication: DIABETES MELLITUS
     Dosage: 1 DOSAGE FORM, ONCE A DAY
     Route: 065
     Dates: start: 20191010
  3. LOSARTAN POTASSIUM. [Concomitant]
     Active Substance: LOSARTAN POTASSIUM
     Indication: BLOOD PRESSURE ABNORMAL
     Dosage: 50 MILLIGRAM
     Route: 065
  4. ZETIA [Concomitant]
     Active Substance: EZETIMIBE
     Indication: BLOOD CHOLESTEROL ABNORMAL
     Dosage: UNK
     Route: 065

REACTIONS (1)
  - Abdominal discomfort [Unknown]

NARRATIVE: CASE EVENT DATE: 20191010
